FAERS Safety Report 9724101 (Version 1)
Quarter: 2013Q4

REPORT INFORMATION
  Report Type: Spontaneous
  Country: AU (occurrence: AU)
  Receive Date: 20131202
  Receipt Date: 20131202
  Transmission Date: 20140711
  Serious: Yes (Death, Other)
  Sender: FDA-Public Use
  Company Number: AU-ROXANE LABORATORIES, INC.-2013-RO-01872RO

PATIENT
  Age: 28 Year
  Sex: Female

DRUGS (3)
  1. CYCLOPHOSPHAMIDE TABLETS USP [Suspect]
     Indication: BREAST CANCER
  2. ADRIAMYCIN [Suspect]
     Indication: BREAST CANCER
  3. PACLITAXEL [Suspect]
     Indication: BREAST CANCER

REACTIONS (3)
  - Sepsis [Fatal]
  - Cytogenetic abnormality [Unknown]
  - Acute myeloid leukaemia [Unknown]
